FAERS Safety Report 4848355-8 (Version None)
Quarter: 2005Q4

REPORT INFORMATION
  Report Type: 
  Country: None (occurrence: None)
  Receive Date: 20051208
  Receipt Date: 20051031
  Transmission Date: 20060501
  Serious: Yes (Hospitalization, Other)
  Sender: FDA-Public Use
  Company Number: 2005AC01745

PATIENT
  Age: 8 Year
  Sex: Male
  Weight: 30.9 kg

DRUGS (3)
  1. SEROQUEL [Suspect]
     Dosage: DRUG GIVEN IN ERROR. DOSE = 19.4 MG/KG.
     Route: 048
  2. OSELTAMIVIR [Suspect]
     Dosage: DRUG USUALLY PRESCRIBED.
  3. HYDROCODONE COUGH SYRUP [Concomitant]
     Indication: COUGH

REACTIONS (7)
  - ACCIDENTAL OVERDOSE [None]
  - DEPRESSED LEVEL OF CONSCIOUSNESS [None]
  - HYPOTENSION [None]
  - LETHARGY [None]
  - PALLOR [None]
  - TACHYCARDIA [None]
  - WRONG DRUG ADMINISTERED [None]
